FAERS Safety Report 6713529-8 (Version None)
Quarter: 2010Q2

REPORT INFORMATION
  Report Type: 
  Country: None (occurrence: None)
  Receive Date: 20100506
  Receipt Date: 20100426
  Transmission Date: 20101027
  Serious: Yes (Other)
  Sender: FDA-Public Use
  Company Number: FR-JNJFOC-20100406837

PATIENT
  Age: 52 Year
  Sex: Male

DRUGS (1)
  1. STELARA [Suspect]
     Indication: PSORIASIS
     Route: 058

REACTIONS (6)
  - ASTHMA [None]
  - COUGH [None]
  - FATIGUE [None]
  - HEADACHE [None]
  - OROPHARYNGEAL PAIN [None]
  - UPPER AIRWAY OBSTRUCTION [None]
